FAERS Safety Report 5006733-0 (Version None)
Quarter: 2006Q2

REPORT INFORMATION
  Report Type: 
  Country: None (occurrence: None)
  Receive Date: 20060516
  Receipt Date: 20060505
  Transmission Date: 20061013
  Serious: No
  Sender: FDA-Public Use
  Company Number: 2006-142366-NL

PATIENT
  Sex: Female

DRUGS (3)
  1. DANAPAROID SODIUM [Suspect]
     Dosage: ANTI-XA
     Dates: start: 20060503
  2. ENOXAPARIN SODIUM [Concomitant]
  3. SODIUM SALT [Concomitant]

REACTIONS (1)
  - THROMBOCYTOPENIA [None]
